FAERS Safety Report 16815023 (Version 1)
Quarter: 2019Q3

REPORT INFORMATION
  Report Type: Report from Study
  Country: BR (occurrence: BR)
  Receive Date: 20190917
  Receipt Date: 20190917
  Transmission Date: 20191005
  Serious: Yes (Hospitalization, Disabling, Other)
  Sender: FDA-Public Use
  Company Number: PHHY2017BR111711

PATIENT
  Age: 58 Year
  Sex: Male
  Weight: 72 kg

DRUGS (4)
  1. SANDOSTATIN LAR DEPOT [Suspect]
     Active Substance: OCTREOTIDE ACETATE
     Indication: ACROMEGALY
     Dosage: 30 MG, QMO (ONE INJECTION EVERY MONTH)
     Route: 030
     Dates: start: 200810, end: 201606
  2. SANDOSTATIN LAR DEPOT [Suspect]
     Active Substance: OCTREOTIDE ACETATE
     Dosage: UNK
     Route: 065
     Dates: start: 20190804
  3. METFORMIN [Concomitant]
     Active Substance: METFORMIN HYDROCHLORIDE
     Indication: DIABETES MELLITUS
     Dosage: 4 DF, QD
     Route: 048
     Dates: start: 2009
  4. SANDOSTATIN LAR DEPOT [Suspect]
     Active Substance: OCTREOTIDE ACETATE
     Dosage: 30 MG, QMO
     Route: 030
     Dates: start: 201901

REACTIONS (21)
  - Tooth fracture [Recovered/Resolved]
  - Mass [Not Recovered/Not Resolved]
  - Pain [Not Recovered/Not Resolved]
  - Hip fracture [Recovered/Resolved]
  - Fracture [Recovering/Resolving]
  - Renal pain [Unknown]
  - Gait inability [Recovering/Resolving]
  - Pituitary enlargement [Unknown]
  - Intervertebral disc protrusion [Not Recovered/Not Resolved]
  - Hernia [Unknown]
  - Spinal pain [Not Recovered/Not Resolved]
  - Rhinorrhoea [Recovering/Resolving]
  - Clavicle fracture [Recovered/Resolved]
  - Neck pain [Recovering/Resolving]
  - Dizziness [Recovering/Resolving]
  - Road traffic accident [Recovered/Resolved]
  - Jaw fracture [Recovered/Resolved]
  - Pelvic fracture [Recovered/Resolved]
  - Headache [Recovering/Resolving]
  - Concomitant disease aggravated [Recovering/Resolving]
  - Therapy non-responder [Unknown]

NARRATIVE: CASE EVENT DATE: 201609
